FAERS Safety Report 14859459 (Version 1)
Quarter: 2018Q2

REPORT INFORMATION
  Report Type: Spontaneous
  Country: DE (occurrence: DE)
  Receive Date: 20180508
  Receipt Date: 20180508
  Transmission Date: 20180711
  Serious: Yes (Other)
  Sender: FDA-Public Use
  Company Number: DE-AUROBINDO-AUR-APL-2018-015712

PATIENT
  Age: 59 Year
  Sex: Male

DRUGS (2)
  1. LEVOFLOXACIN 1 A PHARMA [Suspect]
     Active Substance: LEVOFLOXACIN
     Indication: PRODUCT USED FOR UNKNOWN INDICATION
     Dosage: ()
     Route: 065
     Dates: start: 20171228, end: 20180101
  2. LEVOFLOXACIN. [Suspect]
     Active Substance: LEVOFLOXACIN
     Indication: PRODUCT USED FOR UNKNOWN INDICATION
     Route: 048
     Dates: start: 20171218, end: 20171227

REACTIONS (3)
  - Pyrexia [Recovered/Resolved]
  - Gastritis [Recovered/Resolved]
  - Stomatitis necrotising [Recovered/Resolved]

NARRATIVE: CASE EVENT DATE: 20171230
